FAERS Safety Report 6596625-8 (Version None)
Quarter: 2010Q1

REPORT INFORMATION
  Report Type: 
  Country: None (occurrence: None)
  Receive Date: 20100223
  Receipt Date: 20100216
  Transmission Date: 20100710
  Serious: Yes (Other)
  Sender: FDA-Public Use
  Company Number: US-PFIZER INC-2010005470

PATIENT
  Sex: Female
  Weight: 61 kg

DRUGS (1)
  1. XALATAN [Suspect]
     Indication: CATARACT
     Dosage: DAILY IN BOTH EYES

REACTIONS (2)
  - CATARACT OPERATION [None]
  - CIRCUMSTANCE OR INFORMATION CAPABLE OF LEADING TO MEDICATION ERROR [None]
